FAERS Safety Report 6538921-6 (Version None)
Quarter: 2010Q1

REPORT INFORMATION
  Report Type: 
  Country: None (occurrence: None)
  Receive Date: 20100115
  Receipt Date: 20100108
  Transmission Date: 20100710
  Serious: Yes (Death)
  Sender: FDA-Public Use
  Company Number: BR-ROCHE-678705

PATIENT
  Sex: Male

DRUGS (1)
  1. TAMIFLU [Suspect]
     Route: 065

REACTIONS (1)
  - DEATH [None]
